FAERS Safety Report 15760694 (Version 1)
Quarter: 2018Q4

REPORT INFORMATION
  Report Type: Spontaneous
  Country: US (occurrence: US)
  Receive Date: 20181225
  Receipt Date: 20181225
  Transmission Date: 20190205
  Serious: Yes (Disabling)
  Sender: FDA-Public Use
  Company Number: None

PATIENT
  Age: 26 Year
  Sex: Female
  Weight: 56.25 kg

DRUGS (1)
  1. IUD NOS [Suspect]
     Active Substance: COPPER OR LEVONORGESTREL

REACTIONS (14)
  - Suicidal ideation [None]
  - Loss of employment [None]
  - Complication associated with device [None]
  - Depression [None]
  - Negative thoughts [None]
  - Bedridden [None]
  - Abdominal pain upper [None]
  - Dysmenorrhoea [None]
  - Heart rate increased [None]
  - Loss of consciousness [None]
  - Pelvic pain [None]
  - Quality of life decreased [None]
  - Amenorrhoea [None]
  - Mood swings [None]

NARRATIVE: CASE EVENT DATE: 20171101
